FAERS Safety Report 5287538-2 (Version None)
Quarter: 2007Q1

REPORT INFORMATION
  Report Type: 
  Country: None (occurrence: None)
  Receive Date: 20070116
  Receipt Date: 20060928
  Transmission Date: 20070707
  Serious: No
  Sender: FDA-Public Use
  Company Number: 2006SP003460

PATIENT
  Age: 64 Year
  Sex: Male
  Weight: 97.0698 kg

DRUGS (8)
  1. LUNESTA [Suspect]
     Indication: INSOMNIA
     Dosage: SEE IMAGE
     Route: 048
     Dates: start: 20060101, end: 20060101
  2. LUNESTA [Suspect]
     Indication: INSOMNIA
     Dosage: SEE IMAGE
     Route: 048
     Dates: start: 20060101, end: 20060101
  3. LUNESTA [Suspect]
     Indication: INSOMNIA
     Dosage: SEE IMAGE
     Route: 048
     Dates: start: 20060101
  4. TRANXENE [Concomitant]
  5. DEXAMETHASONE 0.5MG TAB [Concomitant]
  6. VITAMIN CAP [Concomitant]
  7. HALCION [Concomitant]
  8. ASPIRIN [Concomitant]

REACTIONS (1)
  - INSOMNIA [None]
